FAERS Safety Report 5785346-7 (Version None)
Quarter: 2008Q2

REPORT INFORMATION
  Report Type: 
  Country: None (occurrence: None)
  Receive Date: 20080624
  Receipt Date: 20070430
  Transmission Date: 20081010
  Serious: No
  Sender: FDA-Public Use
  Company Number: US-ASTRAZENECA-2007UW08392

PATIENT
  Age: 30 Month
  Sex: Female
  Weight: 16.8 kg

DRUGS (3)
  1. PULMICORT RESPULES [Suspect]
     Route: 055
  2. PULMICORT RESPULES [Suspect]
     Route: 055
     Dates: start: 20070401
  3. ALBUTEROL [Concomitant]

REACTIONS (1)
  - DROOLING [None]
